FAERS Safety Report 25205602 (Version 1)
Quarter: 2025Q2

REPORT INFORMATION
  Report Type: Report from Study
  Country: DE (occurrence: DE)
  Receive Date: 20250417
  Receipt Date: 20250417
  Transmission Date: 20250716
  Serious: Yes (Death, Other)
  Sender: RANBAXY
  Company Number: DE-ALMIRALL-DE-2025-1027

PATIENT
  Age: 35 Year
  Sex: Male

DRUGS (3)
  1. TILDRAKIZUMAB [Suspect]
     Active Substance: TILDRAKIZUMAB
     Indication: Psoriasis
     Route: 058
     Dates: start: 20210720, end: 20230115
  2. STELARA [Suspect]
     Active Substance: USTEKINUMAB
     Indication: Psoriasis
     Route: 065
     Dates: start: 20181115, end: 20210419
  3. Metex [Concomitant]
     Indication: Psoriasis
     Route: 058
     Dates: start: 20180226, end: 20180801

REACTIONS (1)
  - Accidental death [Fatal]

NARRATIVE: CASE EVENT DATE: 20230216
